FAERS Safety Report 9174129 (Version 1)
Quarter: 2013Q1

REPORT INFORMATION
  Report Type: Spontaneous
  Country: US (occurrence: None)
  Receive Date: 20130318
  Receipt Date: 20130318
  Transmission Date: 20140127
  Serious: No
  Sender: FDA-Public Use
  Company Number: None

PATIENT
  Age: 42 Year
  Sex: Female

DRUGS (1)
  1. ZOLPEDEM TARTRATE 10MG (TORRENT) [Suspect]
     Indication: INSOMNIA
     Dosage: 10 MG NIGHTLY PO
     Route: 048
     Dates: start: 20130227, end: 20130314

REACTIONS (3)
  - Somnambulism [None]
  - Sleep-related eating disorder [None]
  - Product substitution issue [None]
